FAERS Safety Report 22646227 (Version 1)
Quarter: 2023Q2

REPORT INFORMATION
  Report Type: Other
  Country: SE (occurrence: SE)
  Receive Date: 20230627
  Receipt Date: 20230627
  Transmission Date: 20230721
  Serious: Yes (Disabling)
  Sender: FDA-Public Use
  Company Number: SE-IBSA PHARMA INC.-2023IBS000606

PATIENT
  Age: 50 Year
  Sex: Female
  Weight: 64 kg

DRUGS (1)
  1. TIROSINT-SOL [Suspect]
     Active Substance: LEVOTHYROXINE SODIUM
     Indication: Autoimmune thyroiditis
     Dosage: 13 MICROGRAM, QD
     Route: 048
     Dates: start: 20230520, end: 20230524

REACTIONS (6)
  - Tinnitus [Recovering/Resolving]
  - Discomfort [Recovering/Resolving]
  - Dissociation [Recovering/Resolving]
  - Anxiety [Recovering/Resolving]
  - Heart rate increased [Recovering/Resolving]
  - Palpitations [Recovering/Resolving]

NARRATIVE: CASE EVENT DATE: 20230501
